FAERS Safety Report 19064374 (Version 1)
Quarter: 2021Q1

REPORT INFORMATION
  Report Type: Spontaneous
  Country: US (occurrence: US)
  Receive Date: 20210326
  Receipt Date: 20210326
  Transmission Date: 20210420
  Serious: Yes (Hospitalization, Other)
  Sender: FDA-Public Use
  Company Number: US-ABBVIE-21K-163-3833937-00

PATIENT
  Sex: Male
  Weight: 59.02 kg

DRUGS (2)
  1. CREON [Suspect]
     Active Substance: PANCRELIPASE AMYLASE\PANCRELIPASE LIPASE\PANCRELIPASE PROTEASE
     Indication: PANCREATIC CARCINOMA
     Dosage: 2 CAPSULE WITH EACH MEAL, 1?2 WITH SNACKS
     Route: 048
     Dates: start: 201907, end: 202011
  2. CREON [Suspect]
     Active Substance: PANCRELIPASE AMYLASE\PANCRELIPASE LIPASE\PANCRELIPASE PROTEASE
     Dosage: 3 CAPSULE WITH EACH MEAL, 1?2 WITH SNACKS
     Route: 048
     Dates: start: 202011

REACTIONS (3)
  - Weight decreased [Recovering/Resolving]
  - Benign pancreatic neoplasm [Recovering/Resolving]
  - Malabsorption [Recovering/Resolving]

NARRATIVE: CASE EVENT DATE: 202008
